FAERS Safety Report 7232877-9 (Version None)
Quarter: 2011Q1

REPORT INFORMATION
  Report Type: 
  Country: None (occurrence: None)
  Receive Date: 20110119
  Receipt Date: 20110113
  Transmission Date: 20110831
  Serious: Yes (Hospitalization, Other)
  Sender: FDA-Public Use
  Company Number: US-PFIZER INC-2010160512

PATIENT
  Sex: Male
  Weight: 86.168 kg

DRUGS (3)
  1. GEODON [Suspect]
     Dosage: 80 MG, UNK
     Dates: start: 20100101, end: 20100801
  2. GEODON [Suspect]
     Indication: DEPRESSION
     Dosage: 60 MG, UNK
     Route: 048
     Dates: start: 20100101, end: 20100101
  3. GEODON [Suspect]
     Dosage: 40 MG, UNK
     Dates: start: 20100101, end: 20100101

REACTIONS (4)
  - DEPRESSION [None]
  - RESTLESS LEGS SYNDROME [None]
  - VISION BLURRED [None]
  - TREMOR [None]
